FAERS Safety Report 4264675-2 (Version None)
Quarter: 2004Q1

REPORT INFORMATION
  Report Type: 
  Country: None (occurrence: None)
  Receive Date: 20040105
  Receipt Date: 20031230
  Transmission Date: 20041129
  Serious: Yes (Hospitalization, Other)
  Sender: FDA-Public Use
  Company Number: 2003-12-1714

PATIENT
  Age: 16 Month
  Sex: Female

DRUGS (1)
  1. ALBUTEROL SULFATE [Suspect]
     Indication: PNEUMONIA
     Dosage: 2 DOSES INHALATION
     Route: 055
     Dates: start: 20031220, end: 20031220

REACTIONS (4)
  - CONVULSION [None]
  - HYPOTONIA [None]
  - OXYGEN SATURATION DECREASED [None]
  - TACHYCARDIA [None]
